FAERS Safety Report 10030467 (Version 2)
Quarter: 2014Q1

REPORT INFORMATION
  Report Type: Spontaneous
  Country: US (occurrence: US)
  Receive Date: 20140323
  Receipt Date: 20140323
  Transmission Date: 20141002
  Serious: No
  Sender: FDA-Public Use
  Company Number: US-ALLERGAN-1402311US

PATIENT
  Age: 51 Year
  Sex: Female

DRUGS (5)
  1. LATISSE 0.03% [Suspect]
     Indication: HYPOTRICHOSIS
     Dosage: UNK, QHS
     Route: 061
     Dates: start: 20131103
  2. EFFEXOR [Concomitant]
     Indication: PRODUCT USED FOR UNKNOWN INDICATION
  3. BIRTH CONTROL PILL NOS [Concomitant]
     Indication: CONTRACEPTION
  4. DYSPORT                            /01136801/ [Concomitant]
     Indication: SKIN WRINKLING
     Dosage: UNK
     Dates: start: 20131102, end: 20131102
  5. JUVEDERM ULTRA XE [Concomitant]
     Indication: SKIN WRINKLING
     Dosage: UNK
     Dates: start: 20131102, end: 20131102

REACTIONS (3)
  - Eye inflammation [Recovered/Resolved]
  - Ocular hyperaemia [Recovered/Resolved]
  - Eye irritation [Recovered/Resolved]
